FAERS Safety Report 5902286-0 (Version None)
Quarter: 2008Q3

REPORT INFORMATION
  Report Type: 
  Country: None (occurrence: None)
  Receive Date: 20080919
  Receipt Date: 20080804
  Transmission Date: 20090109
  Serious: No
  Sender: FDA-Public Use
  Company Number: US-WYE-H05385808

PATIENT
  Age: 66 Year
  Sex: Female
  Weight: 65.83 kg

DRUGS (4)
  1. PRISTIQ [Suspect]
     Indication: ANXIETY
     Dosage: 50 MG 1X PER 1 DAY, ORAL
     Route: 048
     Dates: start: 20080804, end: 20080804
  2. PRISTIQ [Suspect]
     Indication: GASTROINTESTINAL PAIN
     Dosage: 50 MG 1X PER 1 DAY, ORAL
     Route: 048
     Dates: start: 20080804, end: 20080804
  3. LISINOPRIL [Concomitant]
  4. PROTONIX [Concomitant]

REACTIONS (5)
  - ASTHENIA [None]
  - DYSKINESIA [None]
  - MUSCLE TIGHTNESS [None]
  - MUSCULAR WEAKNESS [None]
  - TREMOR [None]
